FAERS Safety Report 9789298 (Version 2)
Quarter: 2014Q1

REPORT INFORMATION
  Report Type: Report from Study
  Country: DE (occurrence: DE)
  Receive Date: 20131231
  Receipt Date: 20140314
  Transmission Date: 20141002
  Serious: Yes (Hospitalization)
  Sender: FDA-Public Use
  Company Number: DE-ROCHE-1323625

PATIENT
  Age: 76 Year
  Sex: Male
  Weight: 64 kg

DRUGS (8)
  1. BEVACIZUMAB [Suspect]
     Indication: COLON CANCER
     Dosage: 325 MG
     Route: 042
     Dates: start: 20131107, end: 20140304
  2. 5-FLUOROURACIL [Suspect]
     Indication: COLON CANCER
     Route: 065
     Dates: start: 20131106
  3. 5-FLUOROURACIL [Suspect]
     Route: 040
     Dates: start: 20131106
  4. 5-FLUOROURACIL [Suspect]
     Route: 041
     Dates: start: 20131106
  5. OXALIPLATIN [Suspect]
     Indication: COLON CANCER
     Dosage: =250 MG
     Route: 042
     Dates: start: 20131106, end: 20140304
  6. FOLINIC ACID [Suspect]
     Indication: COLON CANCER
     Route: 042
     Dates: start: 20131106, end: 20140304
  7. AMLODIPIN [Concomitant]
     Indication: HYPERTENSION
     Route: 048
  8. HCTZ [Concomitant]
     Route: 065

REACTIONS (4)
  - Diarrhoea [Unknown]
  - General physical health deterioration [Unknown]
  - Arthralgia [Recovered/Resolved]
  - Painful defaecation [Recovered/Resolved]
